FAERS Safety Report 4707902-7 (Version None)
Quarter: 2005Q3

REPORT INFORMATION
  Report Type: 
  Country: None (occurrence: None)
  Receive Date: 20050707
  Receipt Date: 20050429
  Transmission Date: 20060218
  Serious: No
  Sender: FDA-Public Use
  Company Number: US-BRISTOL-MYERS SQUIBB COMPANY-12950747

PATIENT
  Sex: Male

DRUGS (1)
  1. SINEMET CR [Suspect]
     Dosage: DURATION OF THERAPY:  A SHORT TIME

REACTIONS (1)
  - DIZZINESS [None]
